FAERS Safety Report 23099266 (Version 3)
Quarter: 2024Q1

REPORT INFORMATION
  Report Type: Spontaneous
  Country: DE (occurrence: DE)
  Receive Date: 20231024
  Receipt Date: 20240116
  Transmission Date: 20240410
  Serious: Yes (Life-Threatening, Hospitalization, Other)
  Sender: FDA-Public Use
  Company Number: DE-CADRBFARM-2023323316

PATIENT
  Age: 53 Year
  Sex: Male
  Weight: 76 kg

DRUGS (1)
  1. EMPAGLIFLOZIN [Suspect]
     Active Substance: EMPAGLIFLOZIN
     Indication: Type 2 diabetes mellitus
     Route: 048
     Dates: start: 20231009, end: 20231018

REACTIONS (9)
  - Tachycardia [Unknown]
  - Tachypnoea [Unknown]
  - Nausea [Unknown]
  - Metabolic acidosis [Recovering/Resolving]
  - Ketoacidosis [Recovering/Resolving]
  - Confusional state [Recovering/Resolving]
  - Acute respiratory failure [Recovering/Resolving]
  - Hypotension [Recovering/Resolving]
  - Vomiting [Unknown]

NARRATIVE: CASE EVENT DATE: 20231001
